FAERS Safety Report 9418735 (Version 2)
Quarter: 2013Q3

REPORT INFORMATION
  Report Type: Spontaneous
  Country: US (occurrence: US)
  Receive Date: 20130725
  Receipt Date: 20130903
  Transmission Date: 20140515
  Serious: No
  Sender: FDA-Public Use
  Company Number: US-PFIZER INC-2013214810

PATIENT
  Age: 69 Year
  Sex: Female
  Weight: 68.03 kg

DRUGS (3)
  1. NEURONTIN [Suspect]
     Indication: NEUROPATHY PERIPHERAL
     Dosage: UNK, 3X/DAY
     Route: 048
     Dates: start: 2011, end: 2011
  2. MOBIC [Concomitant]
     Indication: ARTHRITIS
     Dosage: UNK
  3. LIPITOR [Concomitant]
     Indication: BLOOD CHOLESTEROL INCREASED
     Dosage: UNK

REACTIONS (4)
  - Off label use [Unknown]
  - Impaired work ability [Unknown]
  - Thinking abnormal [Unknown]
  - Drug ineffective for unapproved indication [Unknown]
